FAERS Safety Report 13133955 (Version 1)
Quarter: 2017Q1

REPORT INFORMATION
  Report Type: Spontaneous
  Country: US (occurrence: US)
  Receive Date: 20170120
  Receipt Date: 20170120
  Transmission Date: 20170428
  Serious: Yes (Death, Other)
  Sender: FDA-Public Use
  Company Number: PHHY2017US005522

PATIENT
  Sex: Male

DRUGS (1)
  1. SIMVASTATIN. [Suspect]
     Active Substance: SIMVASTATIN
     Indication: HYPERLIPIDAEMIA
     Dosage: 80 MG, UNK
     Route: 065

REACTIONS (4)
  - Temperature regulation disorder [Unknown]
  - Adjustment disorder with mixed anxiety and depressed mood [Recovering/Resolving]
  - Completed suicide [Fatal]
  - Skin irritation [Unknown]
